FAERS Safety Report 6661678 (Version 2)
Quarter: 2017Q2

REPORT INFORMATION
  Report Type: Spontaneous
  Country: FR (occurrence: FR)
  Receive Date: 20080610
  Receipt Date: 20170414
  Transmission Date: 20170830
  Serious: Yes (Hospitalization, Congenital Anomaly)
  Sender: FDA-Public Use
  Company Number: FR-PFIZER INC-2008046376

PATIENT
  Sex: Male
  Weight: 1.23 kg

DRUGS (10)
  1. CYTOTEC [Suspect]
     Active Substance: MISOPROSTOL
     Indication: ABORTION INDUCED
     Dosage: 4 DF, SINGLE
     Route: 064
  2. PROFENID [Suspect]
     Active Substance: KETOPROFEN
     Dosage: UNK
  3. FLAGYL [Suspect]
     Active Substance: METRONIDAZOLE\METRONIDAZOLE HYDROCHLORIDE
     Dosage: UNK
  4. METRONIDAZOLE TABLET [Suspect]
     Active Substance: METRONIDAZOLE
     Dosage: UNK
  5. LOXEN [Suspect]
     Active Substance: NICARDIPINE HYDROCHLORIDE
     Dosage: UNK
  6. AMOXICILLIN. [Suspect]
     Active Substance: AMOXICILLIN
     Dosage: UNK
  7. CELESTENE [Suspect]
     Active Substance: BETAMETHASONE
     Dosage: UNK
  8. CLAMOXYL [Suspect]
     Active Substance: AMOXICILLIN\CLAVULANIC ACID
     Dosage: UNK
  9. KETOPROFEN. [Suspect]
     Active Substance: KETOPROFEN
     Dosage: 1 DF, SINGLE
     Route: 064
  10. MIFEGYNE [Suspect]
     Active Substance: MIFEPRISTONE
     Indication: ABORTION INDUCED
     Dosage: 1 DF, SINGLE
     Route: 064

REACTIONS (6)
  - Neonatal respiratory distress syndrome [Unknown]
  - Necrotising enterocolitis neonatal [Unknown]
  - Foetal exposure during pregnancy [Unknown]
  - Cerebral haemorrhage [Unknown]
  - Premature baby [Unknown]
  - Glucose-6-phosphate dehydrogenase deficiency [Unknown]

NARRATIVE: CASE EVENT DATE: 20040120
